FAERS Safety Report 5334298-2 (Version None)
Quarter: 2007Q2

REPORT INFORMATION
  Report Type: 
  Country: None (occurrence: None)
  Receive Date: 20070525
  Receipt Date: 20070515
  Transmission Date: 20071010
  Serious: Yes (Other)
  Sender: FDA-Public Use
  Company Number: US-JNJFOC-20070201866

PATIENT
  Sex: Male
  Weight: 84.82 kg

DRUGS (4)
  1. REMICADE [Suspect]
     Indication: PSORIATIC ARTHROPATHY
     Route: 042
  2. REMICADE [Suspect]
     Indication: RHEUMATOID ARTHRITIS
     Dosage: 4 INFUSIONS
     Route: 042
  3. IRON [Concomitant]
     Route: 042
  4. METHOTREXATE [Concomitant]

REACTIONS (1)
  - ANGIOMYOLIPOMA [None]
